FAERS Safety Report 22103862 (Version 1)
Quarter: 2023Q1

REPORT INFORMATION
  Report Type: Spontaneous
  Country: US (occurrence: US)
  Receive Date: 20230316
  Receipt Date: 20230316
  Transmission Date: 20230418
  Serious: No
  Sender: FDA-Public Use
  Company Number: US-BIOVITRUM-2023-US-006843

PATIENT
  Age: 1 Year
  Sex: Female
  Weight: 9 kg

DRUGS (9)
  1. SYNAGIS [Suspect]
     Active Substance: PALIVIZUMAB
     Indication: Chronic respiratory disease
     Dosage: 15 MG/KG OF EACH INTO THE MUSCLE?ONCE A MONTH
     Route: 030
  2. SYNAGIS [Suspect]
     Active Substance: PALIVIZUMAB
     Indication: Premature baby
  3. SYNAGIS [Suspect]
     Active Substance: PALIVIZUMAB
     Indication: Gastrostomy
  4. ALBUTEROL SULFATE [Concomitant]
     Active Substance: ALBUTEROL SULFATE
  5. KATERZIA [Concomitant]
     Active Substance: AMLODIPINE BENZOATE
     Dosage: ORAL SUSP
  6. FLOVENT HFA [Concomitant]
     Active Substance: FLUTICASONE PROPIONATE
     Dosage: 44 MCG AER W/ADAP
  7. OXYGEN [Concomitant]
     Active Substance: OXYGEN
  8. PEPCID [Concomitant]
     Active Substance: FAMOTIDINE
  9. MULTIVITAMIN-IRON-FLUORIDE [Concomitant]

REACTIONS (3)
  - Dyspnoea [Recovered/Resolved]
  - Illness [Recovered/Resolved]
  - Cough [Recovered/Resolved]

NARRATIVE: CASE EVENT DATE: 20221101
